FAERS Safety Report 16043223 (Version 1)
Quarter: 2019Q1

REPORT INFORMATION
  Report Type: Spontaneous
  Country: US (occurrence: US)
  Receive Date: 20190306
  Receipt Date: 20190306
  Transmission Date: 20190418
  Serious: No
  Sender: FDA-Public Use
  Company Number: US-009507513-1903USA002140

PATIENT
  Sex: Female
  Weight: 104.3 kg

DRUGS (1)
  1. FOSAMAX [Suspect]
     Active Substance: ALENDRONATE SODIUM
     Indication: OSTEOPOROSIS PROPHYLAXIS
     Dosage: UNK
     Dates: start: 2004

REACTIONS (3)
  - Osteoporosis [Unknown]
  - Bone density decreased [Unknown]
  - Body height decreased [Unknown]

NARRATIVE: CASE EVENT DATE: 2004
